FAERS Safety Report 20503994 (Version 1)
Quarter: 2022Q1

REPORT INFORMATION
  Report Type: Report from Study
  Country: US (occurrence: US)
  Receive Date: 20220222
  Receipt Date: 20220222
  Transmission Date: 20220424
  Serious: Yes (Life-Threatening, Other)
  Sender: FDA-Public Use
  Company Number: US-NOVARTISPH-NVSC2022US039597

PATIENT
  Age: 78 Year
  Sex: Male

DRUGS (1)
  1. ENTRESTO [Suspect]
     Active Substance: SACUBITRIL\VALSARTAN
     Indication: Product used for unknown indication
     Dosage: 200 MG (97/103 MG: SACUBITRIL 97.2 MG, VALSARTAN 102.8 MG), BID
     Route: 048
     Dates: start: 2020

REACTIONS (2)
  - Myocardial infarction [Unknown]
  - Cough [Unknown]

NARRATIVE: CASE EVENT DATE: 20211001
